FAERS Safety Report 5133390-5 (Version None)
Quarter: 2006Q4

REPORT INFORMATION
  Report Type: 
  Country: None (occurrence: None)
  Receive Date: 20061020
  Receipt Date: 20061020
  Transmission Date: 20070319
  Serious: Yes (Other)
  Sender: FDA-Public Use
  Company Number: None

PATIENT
  Sex: Male

DRUGS (1)
  1. ZICAM [Suspect]
     Route: 055
     Dates: start: 20060927

REACTIONS (6)
  - AGEUSIA [None]
  - ANOSMIA [None]
  - INFECTION [None]
  - LACRIMATION INCREASED [None]
  - NASAL DISCOMFORT [None]
  - PAIN [None]
